FAERS Safety Report 8525972-5 (Version None)
Quarter: 2012Q3

REPORT INFORMATION
  Report Type: 
  Country: None (occurrence: None)
  Receive Date: 20120720
  Receipt Date: 20090603
  Transmission Date: 20120928
  Serious: Yes (Death, Other)
  Sender: FDA-Public Use
  Company Number: PHHY2012JP049320

PATIENT

DRUGS (1)
  1. NILOTINIB [Suspect]
     Dosage: 400 MG, BID
     Route: 048

REACTIONS (4)
  - BACK PAIN [None]
  - CARDIAC TAMPONADE [None]
  - PERICARDIAL EFFUSION [None]
  - CARDIAC FAILURE [None]
